FAERS Safety Report 8459077-9 (Version None)
Quarter: 2012Q2

REPORT INFORMATION
  Report Type: 
  Country: None (occurrence: None)
  Receive Date: 20120622
  Receipt Date: 20120618
  Transmission Date: 20120825
  Serious: Yes (Hospitalization)
  Sender: FDA-Public Use
  Company Number: NL-AMGEN-NLDCT2012037790

PATIENT
  Age: 73 Year
  Sex: Female

DRUGS (7)
  1. PEGFILGRASTIM [Suspect]
     Indication: MALIGNANT LYMPHOID NEOPLASM
     Dosage: 6 MG, UNK
     Route: 058
     Dates: start: 20120502
  2. VERAPAMIL [Concomitant]
     Indication: SUPRAVENTRICULAR TACHYCARDIA
     Dosage: UNK
     Route: 048
     Dates: start: 20120417, end: 20120520
  3. VINCRISTINE [Concomitant]
     Indication: MALIGNANT LYMPHOID NEOPLASM
     Dosage: 2 MG, UNK
     Route: 042
     Dates: start: 20120501
  4. RITUXIMAB [Concomitant]
     Indication: MALIGNANT LYMPHOID NEOPLASM
     Dosage: 700 MG, UNK
     Route: 042
     Dates: start: 20120501
  5. DOXORUBICIN HCL [Concomitant]
     Indication: MALIGNANT LYMPHOID NEOPLASM
     Dosage: 90 MG, UNK
     Route: 042
     Dates: start: 20120501
  6. PREDNISONE TAB [Concomitant]
     Indication: MALIGNANT LYMPHOID NEOPLASM
     Dosage: 100 MG, UNK
     Route: 048
     Dates: start: 20120501
  7. CYCLOPHOSPHAMIDE [Concomitant]
     Indication: MALIGNANT LYMPHOID NEOPLASM
     Dosage: 1400 MG, UNK
     Route: 042
     Dates: start: 20120501

REACTIONS (1)
  - SUPRAVENTRICULAR TACHYCARDIA [None]
